FAERS Safety Report 11222767 (Version 3)
Quarter: 2015Q3

REPORT INFORMATION
  Report Type: Spontaneous
  Country: US (occurrence: US)
  Receive Date: 20150626
  Receipt Date: 20150713
  Transmission Date: 20151125
  Serious: Yes (Death, Hospitalization, Other)
  Sender: FDA-Public Use
  Company Number: US-UNITED THERAPEUTICS-UNT-2015-006553

PATIENT
  Age: 66 Year
  Sex: Female
  Weight: 99.77 kg

DRUGS (1)
  1. REMODULIN [Suspect]
     Active Substance: TREPROSTINIL
     Indication: PULMONARY HYPERTENSION
     Dosage: 0.039 ?G/KG, CONTINUING
     Route: 041
     Dates: start: 20150109

REACTIONS (7)
  - Death [Fatal]
  - Scab [Unknown]
  - Dizziness [Unknown]
  - Pneumonia [Unknown]
  - Sepsis [Unknown]
  - Rash [Recovering/Resolving]
  - Device related infection [Unknown]

NARRATIVE: CASE EVENT DATE: 201505
